FAERS Safety Report 25404057 (Version 2)
Quarter: 2025Q3

REPORT INFORMATION
  Report Type: Report from Study
  Country: ZA (occurrence: ZA)
  Receive Date: 20250606
  Receipt Date: 20250810
  Transmission Date: 20251021
  Serious: Yes (Hospitalization)
  Sender: ALEXION PHARMACEUTICALS
  Company Number: ZA-AstraZeneca-CH-00883329A

PATIENT
  Age: 28 Year
  Sex: Female

DRUGS (8)
  1. BUDESONIDE\FORMOTEROL [Suspect]
     Active Substance: BUDESONIDE\FORMOTEROL
     Indication: Asthma
  2. AMOXICILLIN\CLAVULANIC ACID [Concomitant]
     Active Substance: AMOXICILLIN\CLAVULANIC ACID
     Route: 065
  3. PREDNISONE [Concomitant]
     Active Substance: PREDNISONE
     Route: 065
  4. CETIRIZINE HYDROCHLORIDE [Concomitant]
     Active Substance: CETIRIZINE HYDROCHLORIDE
     Indication: Hypersensitivity
  5. AMMONIUM CHLORIDE\DIPHENHYDRAMINE\ETOFYLLINE\SODIUM CITRATE\THEOPHYLLI [Concomitant]
     Active Substance: AMMONIUM CHLORIDE\DIPHENHYDRAMINE\ETOFYLLINE\SODIUM CITRATE\THEOPHYLLINE
     Route: 065
  6. Medi-keel a [Concomitant]
     Route: 065
  7. ACETYLCYSTEINE [Concomitant]
     Active Substance: ACETYLCYSTEINE
     Route: 065
  8. Adco Dol [Concomitant]
     Route: 065

REACTIONS (1)
  - Illness [Unknown]
